FAERS Safety Report 6470284-7 (Version None)
Quarter: 2009Q4

REPORT INFORMATION
  Report Type: 
  Country: None (occurrence: None)
  Receive Date: 20091203
  Receipt Date: 20091125
  Transmission Date: 20100525
  Serious: Yes (Other)
  Sender: FDA-Public Use
  Company Number: CHPA2009CA15298

PATIENT

DRUGS (1)
  1. BUCKLEY'S DM (NCH) [Suspect]
     Dosage: UNK, UNK

REACTIONS (3)
  - AGEUSIA [None]
  - ANOSMIA [None]
  - DRUG INEFFECTIVE [None]
